FAERS Safety Report 22320011 (Version 2)
Quarter: 2023Q2

REPORT INFORMATION
  Report Type: Report from Study
  Country: US (occurrence: US)
  Receive Date: 20230515
  Receipt Date: 20230518
  Transmission Date: 20230722
  Serious: No
  Sender: FDA-Public Use
  Company Number: US-002147023-NVSC2023US108670

PATIENT
  Sex: Female
  Weight: 90.703 kg

DRUGS (7)
  1. COSENTYX [Suspect]
     Active Substance: SECUKINUMAB
     Indication: Psoriasis
     Dosage: 300 MG
     Route: 058
  2. BETAMETHASONE [Suspect]
     Active Substance: BETAMETHASONE
     Indication: Psoriasis
     Dosage: 0.05 %
     Route: 065
  3. HYDROXYZINE [Suspect]
     Active Substance: HYDROXYZINE HYDROCHLORIDE
     Indication: Psoriasis
     Dosage: 25 MG
     Route: 065
  4. MOMETASONE [Suspect]
     Active Substance: MOMETASONE
     Indication: Psoriasis
     Dosage: UNK
     Route: 065
  5. CLOTRIMAZOLE [Suspect]
     Active Substance: CLOTRIMAZOLE
     Indication: Psoriasis
     Dosage: UNK
     Route: 065
  6. CLOBETASOL [Suspect]
     Active Substance: CLOBETASOL
     Indication: Psoriasis
     Dosage: 0.05 %
     Route: 065
  7. CALCIPOTRIENE [Suspect]
     Active Substance: CALCIPOTRIENE
     Indication: Psoriasis
     Dosage: UNK
     Route: 065

REACTIONS (4)
  - Arthritis [Unknown]
  - Psoriasis [Unknown]
  - Skin exfoliation [Unknown]
  - Drug ineffective [Unknown]
